FAERS Safety Report 8622574-7 (Version None)
Quarter: 2012Q3

REPORT INFORMATION
  Report Type: 
  Country: None (occurrence: None)
  Receive Date: 20120827
  Receipt Date: 20120820
  Transmission Date: 20120928
  Serious: No
  Sender: FDA-Public Use
  Company Number: US-B.I. PHARMACEUTICALS,INC./RIDGEFIELD-2012-BP-20257BP

PATIENT
  Sex: Female

DRUGS (8)
  1. SPIRIVA [Suspect]
     Indication: CHRONIC OBSTRUCTIVE PULMONARY DISEASE
     Dosage: 18 MCG
     Route: 055
     Dates: start: 20120101
  2. THYROID TAB [Concomitant]
     Indication: HYPOTHYROIDISM
     Route: 048
  3. ACYCLOVIR [Concomitant]
     Indication: VIRAL INFECTION
  4. PRAVASTATIN [Concomitant]
     Indication: BLOOD CHOLESTEROL INCREASED
     Dosage: 40 MG
     Route: 048
  5. VICODIN [Concomitant]
     Indication: PAIN
  6. ASPIRIN [Concomitant]
     Indication: SUPPLEMENTATION THERAPY
     Dosage: 81 MG
     Route: 048
  7. CELEBREX [Concomitant]
     Indication: ARTHRITIS
     Dosage: 400 MG
     Route: 048
  8. RANITIDINE [Concomitant]
     Indication: DYSPEPSIA
     Dosage: 300 MG
     Route: 048

REACTIONS (2)
  - ORAL PAIN [None]
  - LEUKOPLAKIA ORAL [None]
